FAERS Safety Report 23602609 (Version 1)
Quarter: 2024Q1

REPORT INFORMATION
  Report Type: Spontaneous
  Country: IT (occurrence: IT)
  Receive Date: 20240306
  Receipt Date: 20240306
  Transmission Date: 20240410
  Serious: Yes (Other)
  Sender: FDA-Public Use
  Company Number: None

PATIENT
  Age: 68 Year
  Sex: Male

DRUGS (2)
  1. FLUOROURACIL [Suspect]
     Active Substance: FLUOROURACIL
     Indication: Colon cancer
     Dosage: FLUOROURACILE
     Route: 042
     Dates: start: 20231120, end: 20231120
  2. IRINOTECAN [Suspect]
     Active Substance: IRINOTECAN
     Indication: Colon cancer
     Route: 042
     Dates: start: 20231120, end: 20231120

REACTIONS (1)
  - Thrombocytopenia [Not Recovered/Not Resolved]

NARRATIVE: CASE EVENT DATE: 20231204
